FAERS Safety Report 12549930 (Version 2)
Quarter: 2016Q3

REPORT INFORMATION
  Report Type: Spontaneous
  Country: JP (occurrence: JP)
  Receive Date: 20160712
  Receipt Date: 20160729
  Transmission Date: 20161109
  Serious: Yes (Hospitalization)
  Sender: FDA-Public Use
  Company Number: JP-DSJP-DSJ-2016-123494

PATIENT

DRUGS (2)
  1. PREDNISOLONE. [Suspect]
     Active Substance: PREDNISOLONE
     Indication: RETROPERITONEAL FIBROSIS
     Dosage: UNK
     Route: 048
  2. LIXIANA TABLETS [Suspect]
     Active Substance: EDOXABAN TOSILATE MONOHYDRATE
     Indication: PELVIC VENOUS THROMBOSIS
     Dosage: UNK
     Route: 048

REACTIONS (3)
  - Gastrointestinal haemorrhage [Unknown]
  - Large intestine perforation [Unknown]
  - Melaena [Unknown]
